FAERS Safety Report 4294562-5 (Version None)
Quarter: 2004Q1

REPORT INFORMATION
  Report Type: 
  Country: None (occurrence: None)
  Receive Date: 20040211
  Receipt Date: 20040204
  Transmission Date: 20041129
  Serious: Yes (Hospitalization)
  Sender: FDA-Public Use
  Company Number: 2004CG00239

PATIENT
  Age: 68 Year
  Sex: Male

DRUGS (9)
  1. MOPRAL [Suspect]
     Dosage: 40 MG DAILY PO
     Route: 048
  2. TARDYFERRON [Suspect]
     Dosage: 80 MG DAILY PO
     Route: 048
     Dates: end: 19991213
  3. ARTANE [Suspect]
     Dosage: 4 MG DAILY PO
     Route: 048
  4. DEBRIDAT ^PARKE DAVIS^ [Suspect]
     Dosage: 300 MG DAILY PO
     Route: 048
  5. RIVOTRIL [Suspect]
     Dosage: 1 MG DAILY PO
     Route: 048
  6. BI-TILDIEM [Suspect]
     Dosage: 180 MG DAILY PO
     Route: 048
  7. IMOVANE [Suspect]
  8. NITROGLYCERIN [Suspect]
  9. PLAVIX [Suspect]

REACTIONS (1)
  - INTESTINAL OBSTRUCTION [None]
